FAERS Safety Report 4980378-0 (Version None)
Quarter: 2006Q2

REPORT INFORMATION
  Report Type: 
  Country: None (occurrence: None)
  Receive Date: 20060424
  Receipt Date: 20060414
  Transmission Date: 20061013
  Serious: Yes (Hospitalization, Other)
  Sender: FDA-Public Use
  Company Number: PHEH2006US04968

PATIENT
  Age: 51 Year
  Sex: Female
  Weight: 58.004 kg

DRUGS (16)
  1. CYCLOSPORINE [Suspect]
     Indication: BONE MARROW TRANSPLANT
     Dosage: 75 MG AM, 50 MG PM
     Dates: start: 20050927, end: 20051201
  2. CAMPATH [Suspect]
     Indication: GRAFT VERSUS HOST DISEASE
     Dosage: 30 MG, ONCE/SINGLE
     Dates: start: 20051103, end: 20051105
  3. CAMPATH [Suspect]
     Dosage: 30 MG, ONCE/SINGLE
     Dates: start: 20051119, end: 20051119
  4. CAMPATH [Suspect]
     Dosage: 30 MG, ONCE/SINGLE
     Dates: start: 20051202
  5. NORVASC [Concomitant]
  6. LEVOTHYROXINE SODIUM [Concomitant]
  7. ZYPREXA [Concomitant]
  8. PAXIL [Concomitant]
  9. HALDOL [Concomitant]
  10. ATIVAN [Concomitant]
  11. ADALAT [Concomitant]
  12. CIPROFLOXACIN HCL [Concomitant]
  13. METHYLPREDNISOLONE [Concomitant]
     Dosage: 3 MG, QD
     Route: 042
  14. METHYLPREDNISOLONE [Concomitant]
     Dosage: 10 MG, QD
     Route: 042
  15. METHYLPREDNISOLONE [Concomitant]
     Dosage: 30 MG, QD
     Route: 042
  16. METHYLPREDNISOLONE [Concomitant]
     Dosage: 30 MG, QW2
     Route: 042

REACTIONS (7)
  - CENTRAL PONTINE MYELINOLYSIS [None]
  - CONFUSIONAL STATE [None]
  - GRAFT VERSUS HOST DISEASE [None]
  - NEPHROPATHY TOXIC [None]
  - NEUROTOXICITY [None]
  - NUCLEAR MAGNETIC RESONANCE IMAGING BRAIN ABNORMAL [None]
  - RENAL FAILURE ACUTE [None]
